FAERS Safety Report 17218505 (Version 1)
Quarter: 2019Q4

REPORT INFORMATION
  Report Type: Spontaneous
  Country: GB (occurrence: GB)
  Receive Date: 20191231
  Receipt Date: 20191231
  Transmission Date: 20200122
  Serious: Yes (Other)
  Sender: FDA-Public Use
  Company Number: GB-TEVA-2019-GB-1159401

PATIENT
  Sex: Female
  Weight: 103.9 kg

DRUGS (3)
  1. LAMOTRIGINE. [Suspect]
     Active Substance: LAMOTRIGINE
     Dosage: 2 WEEKS, 25 MG
     Route: 048
     Dates: start: 20190611, end: 20190624
  2. LAMOTRIGINE. [Suspect]
     Active Substance: LAMOTRIGINE
     Indication: AFFECTIVE DISORDER
     Dosage: TWO WEEKS, 50 MG PER 1 DAY
     Route: 048
     Dates: start: 20190624
  3. LAMOTRIGINE. [Suspect]
     Active Substance: LAMOTRIGINE
     Dosage: 100 MG PER DAY, 1 WEEK
     Route: 048

REACTIONS (1)
  - Electrocardiogram Q wave abnormal [Recovered/Resolved]
